FAERS Safety Report 7971861-4 (Version None)
Quarter: 2011Q4

REPORT INFORMATION
  Report Type: 
  Country: None (occurrence: None)
  Receive Date: 20111212
  Receipt Date: 20111202
  Transmission Date: 20120403
  Serious: Yes (Other)
  Sender: FDA-Public Use
  Company Number: CN-ASTRAZENECA-2011SE73406

PATIENT
  Sex: Female

DRUGS (1)
  1. LIDOCAINE [Suspect]

REACTIONS (1)
  - ABORTION COMPLICATED [None]
